FAERS Safety Report 8250360-9 (Version None)
Quarter: 2012Q2

REPORT INFORMATION
  Report Type: 
  Country: None (occurrence: None)
  Receive Date: 20120402
  Receipt Date: 20120319
  Transmission Date: 20120825
  Serious: No
  Sender: FDA-Public Use
  Company Number: GB-ROCHE-1032320

PATIENT
  Age: 64 Year
  Sex: Female

DRUGS (1)
  1. LUCENTIS [Suspect]
     Indication: RETINAL VEIN OCCLUSION
     Dosage: 4 INJECTIONS WERE RECEIVED
     Route: 050

REACTIONS (1)
  - NO ADVERSE EVENT [None]
